FAERS Safety Report 9015355 (Version 1)
Quarter: 2013Q1

REPORT INFORMATION
  Report Type: Spontaneous
  Country: US (occurrence: None)
  Receive Date: 20130109
  Receipt Date: 20130109
  Transmission Date: 20140127
  Serious: Yes (Disabling, Other)
  Sender: FDA-Public Use
  Company Number: None

PATIENT
  Age: 35 Year
  Sex: Female
  Weight: 147.87 kg

DRUGS (1)
  1. SAPHRIS [Suspect]
     Indication: BIPOLAR II DISORDER
     Dosage: 5MG THEN 10MG 1 @ BED SUBLINGUAL
     Route: 060
     Dates: start: 201204, end: 20120801

REACTIONS (5)
  - Dry mouth [None]
  - Movement disorder [None]
  - Impaired work ability [None]
  - Neurological symptom [None]
  - Pain [None]
